FAERS Safety Report 19739172 (Version 1)
Quarter: 2021Q3

REPORT INFORMATION
  Report Type: Spontaneous
  Country: IN (occurrence: IN)
  Receive Date: 20210824
  Receipt Date: 20210824
  Transmission Date: 20211014
  Serious: Yes (Death)
  Sender: FDA-Public Use
  Company Number: IN-PFIZER INC-2019111728

PATIENT
  Age: 28 Year
  Sex: Female

DRUGS (3)
  1. PALBACE [Suspect]
     Active Substance: PALBOCICLIB
     Indication: BREAST CANCER METASTATIC
     Dosage: 75 MG, 1X/DAY
     Route: 048
     Dates: start: 20180402
  2. PALBACE [Suspect]
     Active Substance: PALBOCICLIB
     Dosage: 125 MG, 1X/DAY
     Route: 048
     Dates: start: 20180402, end: 20200305
  3. PALBACE [Suspect]
     Active Substance: PALBOCICLIB
     Dosage: 125 MG, 1X/DAY
     Route: 048

REACTIONS (6)
  - Facial pain [Recovering/Resolving]
  - Death [Fatal]
  - Weight decreased [Unknown]
  - Neoplasm progression [Unknown]
  - Back pain [Recovering/Resolving]
  - Liver disorder [Unknown]

NARRATIVE: CASE EVENT DATE: 20200305
